FAERS Safety Report 6751065-3 (Version None)
Quarter: 2010Q2

REPORT INFORMATION
  Report Type: 
  Country: None (occurrence: None)
  Receive Date: 20100602
  Receipt Date: 20100520
  Transmission Date: 20101027
  Serious: Yes (Hospitalization, Other)
  Sender: FDA-Public Use
  Company Number: PHHY2010IE23649

PATIENT
  Sex: Female

DRUGS (3)
  1. CLOZARIL [Suspect]
     Indication: SCHIZOPHRENIA
     Dosage: UNK
     Dates: start: 20041126, end: 20100408
  2. CLOZARIL [Suspect]
     Dosage: UNK
     Dates: start: 20100408
  3. CATHETERIZATION [Concomitant]

REACTIONS (7)
  - FALL [None]
  - HYPOTENSION [None]
  - MENTAL IMPAIRMENT [None]
  - MULTI-ORGAN FAILURE [None]
  - PNEUMONIA [None]
  - RENAL FAILURE [None]
  - SCHIZOPHRENIA [None]
